FAERS Safety Report 9893951 (Version 1)
Quarter: 2014Q1

REPORT INFORMATION
  Report Type: Spontaneous
  Country: US (occurrence: US)
  Receive Date: 20140213
  Receipt Date: 20140213
  Transmission Date: 20141002
  Serious: No
  Sender: FDA-Public Use
  Company Number: US-BAYER-2014-023199

PATIENT
  Sex: Female

DRUGS (2)
  1. ALEVE GELCAPS [Suspect]
     Dosage: 2 DF, QD
     Route: 048
  2. BAYER ASPIRIN REGIMEN ADULT LOW STRENGTH [Concomitant]
     Dosage: UNK DF, UNK

REACTIONS (1)
  - Incorrect drug administration duration [None]
